FAERS Safety Report 7942529-5 (Version None)
Quarter: 2011Q4

REPORT INFORMATION
  Report Type: 
  Country: None (occurrence: None)
  Receive Date: 20111128
  Receipt Date: 20111114
  Transmission Date: 20120403
  Serious: Yes (Other)
  Sender: FDA-Public Use
  Company Number: GB-GLAXOSMITHKLINE-B0762690A

PATIENT
  Age: 25 Year
  Sex: Female

DRUGS (1)
  1. SUMATRIPTAN SUCCINATE [Suspect]
     Indication: MIGRAINE
     Dosage: 50MG VARIABLE DOSE
     Route: 048
     Dates: start: 20100101

REACTIONS (2)
  - PALPITATIONS [None]
  - ATRIAL SEPTAL DEFECT [None]
